FAERS Safety Report 17339086 (Version 1)
Quarter: 2020Q1

REPORT INFORMATION
  Report Type: Spontaneous
  Country: US (occurrence: US)
  Receive Date: 20200129
  Receipt Date: 20200129
  Transmission Date: 20200409
  Serious: No
  Sender: FDA-Public Use
  Company Number: US-SA-2020SA020460

PATIENT
  Age: 64 Year
  Sex: Male

DRUGS (1)
  1. LOVENOX [Suspect]
     Active Substance: ENOXAPARIN SODIUM
     Dosage: 120 MG, BID (120MG 8ML EVERY 12 HOURS)
     Route: 065
     Dates: start: 20200103

REACTIONS (2)
  - Injection site reaction [Unknown]
  - Injection site mass [Unknown]
